FAERS Safety Report 13280698 (Version 3)
Quarter: 2017Q3

REPORT INFORMATION
  Report Type: Spontaneous
  Country: US (occurrence: US)
  Receive Date: 20170301
  Receipt Date: 20170728
  Transmission Date: 20171127
  Serious: No
  Sender: FDA-Public Use
  Company Number: US-ASTRAZENECA-2005UW15006

PATIENT
  Age: 65 Year
  Sex: Female
  Weight: 73.5 kg

DRUGS (14)
  1. VALIUM [Concomitant]
     Active Substance: DIAZEPAM
     Indication: ANXIETY
     Dosage: 10 MG AS NEEDED
  2. LUNESTA [Concomitant]
     Active Substance: ESZOPICLONE
     Indication: SLEEP DISORDER
  3. DEXILANT [Concomitant]
     Active Substance: DEXLANSOPRAZOLE
     Indication: GASTROOESOPHAGEAL REFLUX DISEASE
     Dosage: EVERY 5 OR 6 DAYS
     Dates: start: 201603
  4. CRESTOR [Suspect]
     Active Substance: ROSUVASTATIN CALCIUM
     Indication: BLOOD CHOLESTEROL INCREASED
     Route: 048
  5. AMBIEN [Concomitant]
     Active Substance: ZOLPIDEM TARTRATE
  6. DEXILANT [Concomitant]
     Active Substance: DEXLANSOPRAZOLE
     Indication: ULCER
     Dosage: 60 MG CAPSULE, 2 DAILY BY MOUTH
     Dates: start: 20160318, end: 201611
  7. SUCRALFATE. [Concomitant]
     Active Substance: SUCRALFATE
     Dates: start: 20170124, end: 20170124
  8. ESOMEPRAZOLE [Suspect]
     Active Substance: ESOMEPRAZOLE
     Indication: GASTROOESOPHAGEAL REFLUX DISEASE
     Route: 048
  9. DEXILANT [Concomitant]
     Active Substance: DEXLANSOPRAZOLE
     Indication: GASTROOESOPHAGEAL REFLUX DISEASE
     Dosage: 60 MG CAPSULE, 2 DAILY BY MOUTH
     Dates: start: 20160318, end: 201611
  10. RANITIDINE. [Concomitant]
     Active Substance: RANITIDINE
  11. ESOMEPRAZOLE [Suspect]
     Active Substance: ESOMEPRAZOLE
     Indication: GASTROOESOPHAGEAL REFLUX DISEASE
     Route: 048
  12. CRESTOR [Suspect]
     Active Substance: ROSUVASTATIN CALCIUM
     Indication: BLOOD CHOLESTEROL INCREASED
     Route: 048
     Dates: start: 20170712
  13. CRESTOR [Suspect]
     Active Substance: ROSUVASTATIN CALCIUM
     Indication: BLOOD CHOLESTEROL INCREASED
     Route: 048
     Dates: start: 2012
  14. DEXILANT [Concomitant]
     Active Substance: DEXLANSOPRAZOLE
     Indication: ULCER
     Dosage: EVERY 5 OR 6 DAYS
     Dates: start: 201603

REACTIONS (16)
  - Joint swelling [Unknown]
  - Headache [Not Recovered/Not Resolved]
  - Confusional state [Recovered/Resolved]
  - Decreased appetite [Unknown]
  - Gastrooesophageal reflux disease [Unknown]
  - High density lipoprotein decreased [Unknown]
  - Fatigue [Unknown]
  - Myalgia [Unknown]
  - Memory impairment [Not Recovered/Not Resolved]
  - Constipation [Unknown]
  - Oesophageal ulcer [Unknown]
  - Rash pruritic [Unknown]
  - Hepatomegaly [Unknown]
  - Weight increased [Unknown]
  - Vomiting [Unknown]
  - Drug ineffective [Unknown]

NARRATIVE: CASE EVENT DATE: 2014
